FAERS Safety Report 17554196 (Version 1)
Quarter: 2020Q1

REPORT INFORMATION
  Report Type: Spontaneous
  Country: CA (occurrence: CA)
  Receive Date: 20200318
  Receipt Date: 20200318
  Transmission Date: 20200409
  Serious: Yes (Hospitalization, Other)
  Sender: FDA-Public Use
  Company Number: CA-TEVA-2020-CA-1205212

PATIENT
  Age: 11 Year
  Sex: Male
  Weight: 32 kg

DRUGS (9)
  1. METHOTREXATE. [Suspect]
     Active Substance: METHOTREXATE
     Indication: ACUTE LYMPHOCYTIC LEUKAEMIA
     Route: 065
  2. DEXAMETHASONE. [Concomitant]
     Active Substance: DEXAMETHASONE
  3. VINCRISTINE [Concomitant]
     Active Substance: VINCRISTINE
  4. MEGLUMINE FOSOPREPITANT [Concomitant]
  5. MERCAPTOPURINE. [Concomitant]
     Active Substance: MERCAPTOPURINE
  6. CYTARABINE. [Concomitant]
     Active Substance: CYTARABINE
  7. DOXORUBICIN [Concomitant]
     Active Substance: DOXORUBICIN
  8. IDARUBICIN [Concomitant]
     Active Substance: IDARUBICIN
  9. L-ASPARAGINASE [Concomitant]
     Active Substance: ASPARAGINASE

REACTIONS (3)
  - Alanine aminotransferase increased [Unknown]
  - Aspartate aminotransferase increased [Unknown]
  - Hepatotoxicity [Unknown]
